FAERS Safety Report 21791156 (Version 1)
Quarter: 2022Q4

REPORT INFORMATION
  Report Type: Spontaneous
  Country: US (occurrence: US)
  Receive Date: 20221228
  Receipt Date: 20221228
  Transmission Date: 20230112
  Serious: No
  Sender: FDA-Public Use
  Company Number: US-CLOVIS ONCOLOGY-CLO-2022-001164

PATIENT
  Sex: Female

DRUGS (1)
  1. RUBRACA [Suspect]
     Active Substance: RUCAPARIB CAMSYLATE
     Indication: Malignant peritoneal neoplasm
     Dosage: 400 MILLIGRAM, BID
     Dates: start: 202208, end: 202209

REACTIONS (1)
  - Adverse drug reaction [Unknown]
